FAERS Safety Report 9701925 (Version 1)
Quarter: 2013Q4

REPORT INFORMATION
  Report Type: Spontaneous
  Country: US (occurrence: None)
  Receive Date: 20131120
  Receipt Date: 20131120
  Transmission Date: 20140711
  Serious: No
  Sender: FDA-Public Use
  Company Number: None

PATIENT
  Sex: Female
  Weight: 76.2 kg

DRUGS (1)
  1. VALACYCLOVIR [Suspect]
     Indication: ORAL HERPES
     Dosage: 1 GM, DAILY, ORAL
     Route: 048
     Dates: start: 20090624, end: 20121105

REACTIONS (1)
  - Drug ineffective [None]
